FAERS Safety Report 18360346 (Version 1)
Quarter: 2020Q4

REPORT INFORMATION
  Report Type: Spontaneous
  Country: US (occurrence: US)
  Receive Date: 20201008
  Receipt Date: 20201008
  Transmission Date: 20210114
  Serious: Yes (Hospitalization, Disabling)
  Sender: FDA-Public Use
  Company Number: None

PATIENT
  Age: 61 Year
  Sex: Female
  Weight: 66.15 kg

DRUGS (8)
  1. LEVFOTHYROXINE [Concomitant]
  2. VERAPAMIL [Concomitant]
     Active Substance: VERAPAMIL HYDROCHLORIDE
  3. VITAMIN B12 [Concomitant]
     Active Substance: CYANOCOBALAMIN
  4. ROSY A STATIN [Concomitant]
  5. SUMATRIPTAN. [Concomitant]
     Active Substance: SUMATRIPTAN
  6. FISH OIL [Concomitant]
     Active Substance: FISH OIL
  7. MAGNESIUM WITH ZINC [Concomitant]
  8. LISINOPRIL. [Suspect]
     Active Substance: LISINOPRIL
     Indication: HYPERTENSION
     Dosage: ?          QUANTITY:1 TABLET(S);?
     Route: 048
     Dates: start: 20140101

REACTIONS (6)
  - Glomerular filtration rate decreased [None]
  - Blood urine present [None]
  - Drug ineffective [None]
  - Asthenia [None]
  - Renal pain [None]
  - Urinary tract infection [None]

NARRATIVE: CASE EVENT DATE: 20140101
